FAERS Safety Report 4425251-1 (Version None)
Quarter: 2004Q3

REPORT INFORMATION
  Report Type: 
  Country: None (occurrence: None)
  Receive Date: 20040813
  Receipt Date: 20040802
  Transmission Date: 20050211
  Serious: Yes (Hospitalization)
  Sender: FDA-Public Use
  Company Number: IT-BRISTOL-MYERS SQUIBB COMPANY-12658332

PATIENT
  Age: 51 Year
  Sex: Female

DRUGS (2)
  1. CEFAZOLIN [Suspect]
     Indication: ABDOMINAL PAIN
     Dates: start: 20040725, end: 20040727
  2. KETOROLAC TROMETHAMINE [Suspect]
     Indication: ABDOMINAL PAIN
     Dates: start: 20040725, end: 20040727

REACTIONS (1)
  - OEDEMA [None]
